FAERS Safety Report 26049145 (Version 1)
Quarter: 2025Q4

REPORT INFORMATION
  Report Type: Spontaneous
  Country: IN (occurrence: US)
  Receive Date: 20251115
  Receipt Date: 20251115
  Transmission Date: 20260118
  Serious: No
  Sender: AMNEAL
  Company Number: IN-AMNEAL PHARMACEUTICALS-2025-AMRX-03108

PATIENT

DRUGS (1)
  1. ESTRADIOL TRANSDERMAL SYSTEM [Suspect]
     Active Substance: ESTRADIOL
     Indication: Product used for unknown indication
     Dosage: 01 PATCH (0.1 MG) 2 /WEEK
     Route: 062

REACTIONS (3)
  - Wrong technique in device usage process [Unknown]
  - Product adhesion issue [Unknown]
  - No adverse event [Unknown]
